FAERS Safety Report 14921578 (Version 1)
Quarter: 2018Q2

REPORT INFORMATION
  Report Type: Spontaneous
  Country: US (occurrence: US)
  Receive Date: 20180522
  Receipt Date: 20180522
  Transmission Date: 20180711
  Serious: Yes (Hospitalization)
  Sender: FDA-Public Use
  Company Number: US-BEH-2018090834

PATIENT
  Age: 65 Year
  Sex: Male

DRUGS (15)
  1. CELECOXIB. [Concomitant]
     Active Substance: CELECOXIB
  2. METHOTREXATE. [Concomitant]
     Active Substance: METHOTREXATE
  3. GABAPENTIN. [Concomitant]
     Active Substance: GABAPENTIN
  4. HIZENTRA [Suspect]
     Active Substance: HUMAN IMMUNOGLOBULIN G
     Dosage: UNK
     Route: 058
  5. VITAMIN D3 [Concomitant]
     Active Substance: CHOLECALCIFEROL
  6. HIZENTRA [Suspect]
     Active Substance: HUMAN IMMUNOGLOBULIN G
     Dosage: 10 G, QW
     Route: 058
     Dates: start: 20120216
  7. COREG [Concomitant]
     Active Substance: CARVEDILOL
  8. LIVALO [Concomitant]
     Active Substance: PITAVASTATIN CALCIUM
  9. FOLIC ACID. [Concomitant]
     Active Substance: FOLIC ACID
  10. HIZENTRA [Suspect]
     Active Substance: HUMAN IMMUNOGLOBULIN G
     Indication: IMMUNODEFICIENCY COMMON VARIABLE
     Dosage: UNK
     Route: 058
  11. ELIQUIS [Concomitant]
     Active Substance: APIXABAN
  12. CALCIUM [Concomitant]
     Active Substance: CALCIUM
  13. EPIPEN [Concomitant]
     Active Substance: EPINEPHRINE
  14. ASPIRIN. [Concomitant]
     Active Substance: ASPIRIN
  15. VITAMIN B12 [Concomitant]
     Active Substance: CYANOCOBALAMIN

REACTIONS (1)
  - Pulmonary oedema [Unknown]

NARRATIVE: CASE EVENT DATE: 201805
